FAERS Safety Report 7382429-5 (Version None)
Quarter: 2011Q1

REPORT INFORMATION
  Report Type: 
  Country: None (occurrence: None)
  Receive Date: 20110329
  Receipt Date: 20110310
  Transmission Date: 20110831
  Serious: Yes (Death, Hospitalization, Other)
  Sender: FDA-Public Use
  Company Number: US-BAYER-201010371NA

PATIENT
  Sex: Female
  Weight: 58.957 kg

DRUGS (23)
  1. ASPIRIN [Concomitant]
     Dosage: 325 MG, QD
     Route: 048
  2. LIPITOR [Concomitant]
     Dosage: 10 MG, QD
     Route: 048
  3. CEFAZOLIN [Concomitant]
     Dosage: 1 G, UNK
     Route: 042
     Dates: start: 20051010, end: 20051010
  4. TRASYLOL [Suspect]
     Indication: CORONARY ARTERY BYPASS
     Dosage: 200CC FOLLOWED BY A 50CC/HR DRIP
     Route: 042
     Dates: start: 20051010, end: 20051010
  5. POTASSIUM CHLORIDE [Concomitant]
     Indication: HYPOKALAEMIA
     Dosage: 20 MEQ, QD
     Route: 048
     Dates: start: 20050801
  6. NICARDIPINE HYDROCHLORIDE [Concomitant]
     Dosage: UNK
     Route: 042
     Dates: start: 20051011, end: 20051011
  7. FENTANYL [Concomitant]
     Dosage: 15 MG, UNK
     Route: 042
     Dates: start: 20051010, end: 20051010
  8. NEXIUM [Concomitant]
     Dosage: 40 MG, QD
     Route: 048
  9. TRASYLOL [Suspect]
     Indication: MITRAL VALVE REPLACEMENT
     Dosage: 2 ML INITIAL (TEST) DOSE
     Route: 042
     Dates: start: 20051010, end: 20051010
  10. TRASYLOL [Suspect]
     Indication: UNEVALUABLE EVENT
  11. DOBUTAMINE [Concomitant]
     Dosage: 8 MCG/KG/MIN
     Route: 042
     Dates: start: 20051011, end: 20051011
  12. MILRINONE [Concomitant]
     Dosage: 0.25 MCG/KG/MIN
     Route: 042
     Dates: start: 20051010
  13. TOPROL-XL [Concomitant]
     Dosage: 100 MG, QD
     Route: 048
  14. PLAVIX [Concomitant]
     Indication: RENAL ARTERY STENT PLACEMENT
     Dosage: 75 MG, QD
     Route: 048
  15. HYDROCHLOROTHIAZIDE [Concomitant]
     Dosage: 25 MG, QD
  16. PROTAMINE SULFATE [Concomitant]
     Dosage: 220 MG, UNK
     Route: 042
     Dates: start: 20051010, end: 20051010
  17. HEPARIN SODIUM [Concomitant]
     Dosage: 25000 U, UNK
     Route: 042
     Dates: start: 20051010, end: 20051010
  18. ACETYLSALICYLIC ACID SRT [Concomitant]
     Dosage: 325 MG, QD
     Route: 048
  19. DIOVAN HCT [Concomitant]
     Dosage: 160-12.5 MG QD
     Route: 048
  20. EPINEPHRINE [Concomitant]
     Dosage: 5 MCG/KG/MIN
     Dates: start: 20051011, end: 20051011
  21. NITROGLYCERIN [Concomitant]
     Dosage: DRIP
     Route: 042
     Dates: start: 20051010
  22. PANCURONIUM BROMIDE [Concomitant]
     Dosage: 10MG/40MG/
     Route: 042
     Dates: start: 20051010, end: 20051010
  23. VERSED [Concomitant]
     Dosage: 5 MG, UNK
     Route: 042
     Dates: start: 20051010, end: 20051010

REACTIONS (12)
  - EMOTIONAL DISTRESS [None]
  - PAIN [None]
  - STRESS [None]
  - ANXIETY [None]
  - FEAR [None]
  - DEATH [None]
  - RENAL INJURY [None]
  - ANHEDONIA [None]
  - UNEVALUABLE EVENT [None]
  - INJURY [None]
  - RENAL IMPAIRMENT [None]
  - RENAL FAILURE [None]
